FAERS Safety Report 6915303-6 (Version None)
Quarter: 2010Q3

REPORT INFORMATION
  Report Type: 
  Country: None (occurrence: None)
  Receive Date: 20100809
  Receipt Date: 20090916
  Transmission Date: 20110219
  Serious: No
  Sender: FDA-Public Use
  Company Number: US-ABBOTT-09P-163-0598230-00

PATIENT
  Age: 40 Year
  Sex: Female

DRUGS (2)
  1. DEPAKOTE ER [Suspect]
     Indication: BIPOLAR DISORDER
     Route: 048
  2. DEPAKOTE ER [Suspect]
     Route: 048

REACTIONS (1)
  - OVARIAN CYST [None]
